FAERS Safety Report 4569038-8 (Version None)
Quarter: 2005Q1

REPORT INFORMATION
  Report Type: 
  Country: None (occurrence: None)
  Receive Date: 20050125
  Receipt Date: 20050125
  Transmission Date: 20050727
  Serious: No
  Sender: FDA-Public Use
  Company Number: None

PATIENT
  Age: 19 Year
  Sex: Female
  Weight: 45.3597 kg

DRUGS (3)
  1. ZOFRAN [Suspect]
     Indication: VOMITING
     Dosage: 4MG  Q8H  INTRAVENOUS
     Route: 042
     Dates: start: 20041229, end: 20050101
  2. PROTONIX [Concomitant]
  3. REGLAN [Concomitant]

REACTIONS (1)
  - CONVULSION [None]
